FAERS Safety Report 4319371-X (Version None)
Quarter: 2004Q1

REPORT INFORMATION
  Report Type: 
  Country: None (occurrence: None)
  Receive Date: 20040316
  Receipt Date: 20040302
  Transmission Date: 20041129
  Serious: Yes (Hospitalization)
  Sender: FDA-Public Use
  Company Number: 03P-251-0242064-00

PATIENT
  Age: 3 Year
  Sex: Female

DRUGS (1)
  1. DEPAKENE [Suspect]
     Indication: TEMPORAL LOBE EPILEPSY
     Dosage: 50MG/KG/DAY, PER ORAL
     Route: 048
     Dates: start: 20020101, end: 20030901

REACTIONS (3)
  - CONDITION AGGRAVATED [None]
  - DRUG INEFFECTIVE [None]
  - EPILEPSY [None]
